FAERS Safety Report 7011726-8 (Version None)
Quarter: 2010Q3

REPORT INFORMATION
  Report Type: 
  Country: None (occurrence: None)
  Receive Date: 20100923
  Receipt Date: 20090630
  Transmission Date: 20110219
  Serious: No
  Sender: FDA-Public Use
  Company Number: US-WYE-H09971509

PATIENT
  Sex: Male

DRUGS (2)
  1. ADVIL COLD AND SINUS [Suspect]
     Indication: SINUS HEADACHE
     Dosage: UNKNOWN
     Route: 048
  2. METFORMIN [Concomitant]

REACTIONS (1)
  - DRUG SCREEN FALSE POSITIVE [None]
